FAERS Safety Report 9112507 (Version 1)
Quarter: 2013Q1

REPORT INFORMATION
  Report Type: Spontaneous
  Country: US (occurrence: US)
  Receive Date: 20130211
  Receipt Date: 20130211
  Transmission Date: 20140127
  Serious: No
  Sender: FDA-Public Use
  Company Number: US-TEVA-385267USA

PATIENT
  Sex: Female

DRUGS (2)
  1. PROAIR HFA [Suspect]
     Indication: WHEEZING
     Dosage: 2 PUFFS TID PRN
     Dates: start: 20130204
  2. LESSINA [Concomitant]
     Indication: CONTRACEPTION

REACTIONS (1)
  - Tremor [Not Recovered/Not Resolved]
